FAERS Safety Report 9634077 (Version 7)
Quarter: 2014Q2

REPORT INFORMATION
  Report Type: Spontaneous
  Country: US (occurrence: US)
  Receive Date: 20131021
  Receipt Date: 20140429
  Transmission Date: 20141212
  Serious: No
  Sender: FDA-Public Use
  Company Number: US-009507513-1310USA004141

PATIENT
  Age: 52 Year
  Sex: Male

DRUGS (8)
  1. REBETOL [Suspect]
     Indication: CHRONIC HEPATITIS C
     Dosage: 1200 MG, 1 IN 1 D
     Route: 048
     Dates: start: 20130523
  2. REBETOL [Suspect]
     Dosage: DOSE REDUCED (1 IN 1D) 800 MG/DAY
     Route: 065
     Dates: start: 20131113, end: 20140320
  3. REBETOL [Suspect]
     Dosage: UNK
     Route: 065
  4. PEGASYS [Suspect]
     Indication: CHRONIC HEPATITIS C
     Dosage: 180 MICROGRAM, 1 IN 1 WEEK, PROCLIK
     Route: 065
     Dates: start: 20130523, end: 20140320
  5. PEGASYS [Suspect]
     Dosage: UNK
     Route: 065
  6. VICTRELIS [Suspect]
     Indication: CHRONIC HEPATITIS C
     Dosage: 3 DF, 3 IN 1 D
     Route: 048
     Dates: start: 20130627
  7. NYSTATIN [Concomitant]
  8. SPIRIVA [Concomitant]

REACTIONS (32)
  - Burning sensation [Unknown]
  - Anorectal discomfort [Unknown]
  - Oral candidiasis [Recovering/Resolving]
  - Lip ulceration [Unknown]
  - Lip pain [Unknown]
  - Fall [Unknown]
  - Upper limb fracture [Unknown]
  - Sleep disorder [Unknown]
  - Decreased appetite [Unknown]
  - Pain in extremity [Unknown]
  - Paraesthesia [Unknown]
  - Contusion [Recovering/Resolving]
  - Fatigue [Unknown]
  - Nausea [Unknown]
  - Pain [Unknown]
  - Neuralgia [Unknown]
  - Diarrhoea [Unknown]
  - Dysgeusia [Unknown]
  - Pain [Unknown]
  - Anaemia [Unknown]
  - Haemoglobin decreased [Unknown]
  - Cough [Unknown]
  - Oropharyngeal pain [Unknown]
  - Dyspnoea [Unknown]
  - Pain in extremity [Unknown]
  - Haemorrhoids [Unknown]
  - Alopecia [Unknown]
  - Chest pain [Recovered/Resolved]
  - Pain [Unknown]
  - Fatigue [Unknown]
  - Asthenia [Unknown]
  - Rash [Unknown]
